FAERS Safety Report 7331522-1 (Version None)
Quarter: 2011Q1

REPORT INFORMATION
  Report Type: 
  Country: None (occurrence: None)
  Receive Date: 20110304
  Receipt Date: 20110222
  Transmission Date: 20110831
  Serious: Yes (Life-Threatening, Hospitalization)
  Sender: FDA-Public Use
  Company Number: ES-CELGENEUS-144-C5013-11010813

PATIENT
  Sex: Male

DRUGS (8)
  1. ASPIRIN [Concomitant]
     Dosage: 100 MILLIGRAM
     Route: 048
  2. ENOXAPARIN [Concomitant]
     Indication: THROMBOSIS PROPHYLAXIS
     Dosage: 40 MILLIGRAM
     Route: 058
  3. CC-5013 [Suspect]
     Indication: MULTIPLE MYELOMA
     Dosage: 25 MILLIGRAM
     Route: 048
     Dates: start: 20091210
  4. DEXAMETHASONE [Suspect]
     Dosage: 20 MILLIGRAM
     Route: 065
     Dates: start: 20101214, end: 20110110
  5. CC-5013 [Suspect]
     Dosage: 25 MILLIGRAM
     Route: 048
     Dates: start: 20101214, end: 20110103
  6. ENALAPRIL [Concomitant]
     Indication: HYPERTENSION
     Dosage: 20 MILLIGRAM
     Route: 048
  7. DEXAMETHASONE [Suspect]
     Indication: MULTIPLE MYELOMA
     Dosage: 40 MILLIGRAM
     Route: 065
     Dates: start: 20091210
  8. CLOPIDOGREL [Concomitant]
     Dosage: 75 MILLIGRAM
     Route: 048

REACTIONS (1)
  - CARDIOGENIC SHOCK [None]
